FAERS Safety Report 7278701-X (Version None)
Quarter: 2011Q1

REPORT INFORMATION
  Report Type: 
  Country: None (occurrence: None)
  Receive Date: 20110207
  Receipt Date: 20110125
  Transmission Date: 20110831
  Serious: Yes (Hospitalization)
  Sender: FDA-Public Use
  Company Number: PHHY2011SG07594

PATIENT
  Age: 29 Year
  Sex: Female

DRUGS (3)
  1. RISPERIDONE [Suspect]
     Indication: SCHIZOPHRENIA
     Dosage: 6 MG, UNK
  2. TRIFLUOPERAZINE HCL [Suspect]
  3. OLANZAPINE [Suspect]

REACTIONS (7)
  - PITUITARY TUMOUR BENIGN [None]
  - BRAIN MASS [None]
  - TREATMENT NONCOMPLIANCE [None]
  - MEMORY IMPAIRMENT [None]
  - DISTURBANCE IN ATTENTION [None]
  - HALLUCINATION, VISUAL [None]
  - PERSECUTORY DELUSION [None]
